FAERS Safety Report 4531847-9 (Version None)
Quarter: 2004Q4

REPORT INFORMATION
  Report Type: 
  Country: None (occurrence: None)
  Receive Date: 20041220
  Receipt Date: 20041206
  Transmission Date: 20050328
  Serious: Yes (Disabling, Other)
  Sender: FDA-Public Use
  Company Number: FR-BRISTOL-MYERS SQUIBB COMPANY-12787719

PATIENT
  Age: 61 Year
  Sex: Male

DRUGS (1)
  1. VASTEN [Suspect]
     Indication: HYPERCHOLESTEROLAEMIA
     Route: 048
     Dates: start: 20040401, end: 20040529

REACTIONS (10)
  - ALOPECIA [None]
  - ASTHENIA [None]
  - DERMATITIS BULLOUS [None]
  - DERMATITIS EXFOLIATIVE [None]
  - ECZEMA [None]
  - EOSINOPHILIA [None]
  - FACE OEDEMA [None]
  - GANGLION [None]
  - NEUTROPENIA [None]
  - ONYCHOMADESIS [None]
